FAERS Safety Report 8360376-X (Version None)
Quarter: 2012Q1

REPORT INFORMATION
  Report Type: 
  Country: None (occurrence: None)
  Receive Date: 20120323
  Receipt Date: 20110427
  Transmission Date: 20120608
  Serious: Yes (Hospitalization)
  Sender: FDA-Public Use
  Company Number: 163-21880-11043579

PATIENT
  Age: 70 Year
  Sex: Male
  Weight: 88.905 kg

DRUGS (16)
  1. VITAMIN D [Concomitant]
  2. CARVEDILOL [Concomitant]
  3. FISH OIL (FISH OIL) [Concomitant]
  4. OMEPRAZOLE [Concomitant]
  5. VITAMIN B12 [Concomitant]
  6. CALCIUM CARBONATE [Concomitant]
  7. SIMVASTATIN [Concomitant]
  8. FENTANYL [Concomitant]
  9. LEVOTHYROXINE SODIUM [Concomitant]
  10. LISINOPRIL [Concomitant]
  11. PROCHLORPER (PROCHLORPERAZINE) [Concomitant]
  12. REVLIMID [Suspect]
     Indication: MULTIPLE MYELOMA
     Dosage: 5 MG, QD, FOR 28 DAYS, PO
     Route: 048
     Dates: start: 20101101
  13. BACLOFEN [Concomitant]
  14. ATIVAN [Concomitant]
  15. FOLIC ACID [Concomitant]
  16. HYDROCODONE BITARTRATE [Concomitant]

REACTIONS (2)
  - GASTROOESOPHAGEAL REFLUX DISEASE [None]
  - FOOD POISONING [None]
